FAERS Safety Report 14613855 (Version 3)
Quarter: 2018Q3

REPORT INFORMATION
  Report Type: Spontaneous
  Country: NL (occurrence: NL)
  Receive Date: 20180308
  Receipt Date: 20180726
  Transmission Date: 20181010
  Serious: Yes (Other)
  Sender: FDA-Public Use
  Company Number: NL-TEVA-2018-NL-865857

PATIENT
  Age: 76 Year
  Sex: Female
  Weight: 82 kg

DRUGS (8)
  1. CLOPIDOGREL [Concomitant]
     Active Substance: CLOPIDOGREL BISULFATE
     Dosage: THERAPY START DATE AND END DATE WERE ASKED BUT UNKNOWN.
  2. PANTOPRAZOLE [Suspect]
     Active Substance: PANTOPRAZOLE
     Indication: GASTRIC DISORDER
  3. FUROSEMIDE. [Concomitant]
     Active Substance: FUROSEMIDE
     Dosage: THERAPY START DATE AND END DATE WERE ASKED BUT UNKNOWN.
  4. SIMVASTATINE [Concomitant]
     Active Substance: SIMVASTATIN
     Dosage: THERAPY START DATE AND END DATE WERE ASKED BUT UNKNOWN.
  5. CHOLECALCIFEROL [Concomitant]
     Active Substance: CHOLECALCIFEROL
     Dosage: THERAPY START DATE AND END DATE WERE ASKED BUT UNKNOWN.
  6. PANTOPRAZOLE [Suspect]
     Active Substance: PANTOPRAZOLE
     Indication: PROPHYLAXIS
     Dates: start: 20171026, end: 20171116
  7. VALSARTAN. [Concomitant]
     Active Substance: VALSARTAN
     Dosage: THERAPY START DATE AND END DATE WERE ASKED BUT UNKNOWN.
  8. DEPAKINE [Concomitant]
     Active Substance: VALPROATE SODIUM
     Dosage: THERAPY START DATE AND END DATE WERE ASKED BUT UNKNOWN.

REACTIONS (1)
  - Renal impairment [Recovered/Resolved]

NARRATIVE: CASE EVENT DATE: 20171111
